FAERS Safety Report 24764635 (Version 1)
Quarter: 2024Q4

REPORT INFORMATION
  Report Type: Spontaneous
  Country: US (occurrence: US)
  Receive Date: 20241223
  Receipt Date: 20241223
  Transmission Date: 20250114
  Serious: Yes (Death, Hospitalization, Other)
  Sender: GLAXOSMITHKLINE
  Company Number: US-GSK-US2024GSK160724

PATIENT

DRUGS (2)
  1. BUPROPION HYDROCHLORIDE XL [Suspect]
     Active Substance: BUPROPION HYDROCHLORIDE
     Indication: Product used for unknown indication
     Dosage: 300 MG
     Route: 048
  2. ALCOHOL [Suspect]
     Active Substance: ALCOHOL
     Indication: Product used for unknown indication
     Dosage: UNK
     Route: 048

REACTIONS (15)
  - Suspected suicide [Fatal]
  - Overdose [Fatal]
  - Generalised tonic-clonic seizure [Fatal]
  - Agitation [Fatal]
  - Disorientation [Fatal]
  - Aggression [Fatal]
  - Mental status changes [Fatal]
  - Tachycardia [Fatal]
  - Myoclonus [Fatal]
  - Hypotension [Fatal]
  - Areflexia [Fatal]
  - Cough [Fatal]
  - Ventricular tachycardia [Fatal]
  - Cardiac fibrillation [Fatal]
  - Pulseless electrical activity [Fatal]
